FAERS Safety Report 16269314 (Version 2)
Quarter: 2022Q1

REPORT INFORMATION
  Report Type: Spontaneous
  Country: BR (occurrence: BR)
  Receive Date: 20190503
  Receipt Date: 20220331
  Transmission Date: 20220423
  Serious: Yes (Other)
  Sender: FDA-Public Use
  Company Number: BR-TEVA-2019-BR-1045143

PATIENT
  Sex: Female
  Weight: 67 kg

DRUGS (1)
  1. NEOTIGASON [Suspect]
     Active Substance: ACITRETIN
     Indication: Keratosis follicular
     Dosage: 50 MILLIGRAM DAILY; NEOTIGASON 10 MG AND 25 MG, STARTED WHEN SHE WAS 18 YEARS OLD, SHE WAS USING 20
     Route: 048

REACTIONS (1)
  - Thyroid cancer [Recovered/Resolved]
